FAERS Safety Report 4728739-9 (Version None)
Quarter: 2005Q3

REPORT INFORMATION
  Report Type: 
  Country: None (occurrence: None)
  Receive Date: 20050729
  Receipt Date: 20050715
  Transmission Date: 20060218
  Serious: Yes (Other)
  Sender: FDA-Public Use
  Company Number: US-GLAXOSMITHKLINE-A0567096A

PATIENT
  Sex: Male
  Weight: 3.2 kg

DRUGS (7)
  1. ZIAGEN [Suspect]
     Indication: HIV INFECTION
     Dosage: 600MG PER DAY
  2. EPIVIR [Suspect]
     Indication: HIV INFECTION
     Dosage: 300MG PER DAY
  3. RETROVIR [Suspect]
     Indication: HIV INFECTION
     Dosage: 211MG PER DAY
     Dates: start: 20050707, end: 20050707
  4. RETROVIR [Suspect]
     Dates: start: 20050707, end: 20050708
  5. FOSAMPRENAVIR [Suspect]
     Indication: HIV INFECTION
     Dosage: 1400MG PER DAY
  6. FOLATE [Concomitant]
  7. TRIMETHOPRIM-SULFAMETHOXAZOLE [Concomitant]

REACTIONS (2)
  - CRYPTORCHISM [None]
  - DRUG EXPOSURE DURING PREGNANCY [None]
